FAERS Safety Report 9057567 (Version 1)
Quarter: 2013Q1

REPORT INFORMATION
  Report Type: Spontaneous
  Country: US (occurrence: None)
  Receive Date: 20130204
  Receipt Date: 20130204
  Transmission Date: 20140127
  Serious: Yes (Hospitalization)
  Sender: FDA-Public Use
  Company Number: None

PATIENT
  Age: 88 Year
  Sex: Male
  Weight: 70.4 kg

DRUGS (1)
  1. URIBEL [Suspect]
     Dosage: 1 TABLET QID PRN PO

REACTIONS (2)
  - Confusional state [None]
  - Hallucination [None]
